FAERS Safety Report 12279930 (Version 3)
Quarter: 2016Q2

REPORT INFORMATION
  Report Type: Spontaneous
  Country: GB (occurrence: GB)
  Receive Date: 20160418
  Receipt Date: 20160527
  Transmission Date: 20160815
  Serious: Yes (Other)
  Sender: FDA-Public Use
  Company Number: GB-AMGEN-GBRSP2016009662

PATIENT
  Age: 52 Year
  Sex: Female

DRUGS (6)
  1. NEULASTA [Suspect]
     Active Substance: PEGFILGRASTIM
     Indication: PRODUCT USED FOR UNKNOWN INDICATION
     Dosage: 6 MG, UNK
     Route: 058
  2. DOCETAXEL. [Concomitant]
     Active Substance: DOCETAXEL
     Dosage: UNK
  3. EPIRUBICIN [Concomitant]
     Active Substance: EPIRUBICIN
     Dosage: UNK
  4. APREPITANT. [Concomitant]
     Active Substance: APREPITANT
     Dosage: UNK
  5. CYCLOPHOSPHAMIDE. [Concomitant]
     Active Substance: CYCLOPHOSPHAMIDE
     Dosage: UNK
  6. 5 FU [Concomitant]
     Active Substance: FLUOROURACIL
     Dosage: UNK

REACTIONS (16)
  - Pain [Unknown]
  - Toxicity to various agents [Unknown]
  - Pyrexia [Unknown]
  - Headache [Recovering/Resolving]
  - Candida infection [Unknown]
  - Dizziness [Recovered/Resolved]
  - Sensitivity of teeth [Not Recovered/Not Resolved]
  - Oropharyngeal pain [Unknown]
  - Sleep disorder [Unknown]
  - Localised oedema [Unknown]
  - Skin discolouration [Unknown]
  - Arthralgia [Unknown]
  - Alopecia [Unknown]
  - Diabetes mellitus [Unknown]
  - Flushing [Recovering/Resolving]
  - Pain of skin [Unknown]

NARRATIVE: CASE EVENT DATE: 20160217
